FAERS Safety Report 9542399 (Version 1)
Quarter: 2013Q3

REPORT INFORMATION
  Report Type: Spontaneous
  Country: CA (occurrence: None)
  Receive Date: 20130918
  Receipt Date: 20130918
  Transmission Date: 20140515
  Serious: Yes (Death, Hospitalization)
  Sender: FDA-Public Use
  Company Number: ENT 2013-0161

PATIENT
  Age: 55 Year
  Sex: Male

DRUGS (3)
  1. ENTACAPONE [Suspect]
  2. LEVODOPA-CARBIDOPA [Concomitant]
  3. QUETIAPINE [Concomitant]

REACTIONS (19)
  - Cardio-respiratory arrest [None]
  - Incorrect dose administered [None]
  - Toxicity to various agents [None]
  - Iatrogenic injury [None]
  - Neuroleptic malignant syndrome [None]
  - Rhabdomyolysis [None]
  - Hypoxic-ischaemic encephalopathy [None]
  - Cardiotoxicity [None]
  - Tremor [None]
  - Paranoia [None]
  - Hallucination [None]
  - Agitation [None]
  - Pulseless electrical activity [None]
  - Renal failure acute [None]
  - Restlessness [None]
  - Muscle rigidity [None]
  - Condition aggravated [None]
  - Loss of consciousness [None]
  - Medication error [None]
